FAERS Safety Report 10746216 (Version 2)
Quarter: 2015Q1

REPORT INFORMATION
  Report Type: Report from Study
  Country: IT (occurrence: IT)
  Receive Date: 20150128
  Receipt Date: 20150309
  Transmission Date: 20150721
  Serious: Yes (Death, Congenital Anomaly, Other)
  Sender: FDA-Public Use
  Company Number: IT-ABBVIE-15P-083-1339067-00

PATIENT
  Age: 72 Year
  Sex: Female
  Weight: 69 kg

DRUGS (1)
  1. DUODOPA [Suspect]
     Active Substance: CARBIDOPA\LEVODOPA
     Indication: PARKINSON^S DISEASE
     Dosage: MD: 12.4, CONTINUOUS: 3.5, ED: 1.8
     Route: 050
     Dates: start: 201202, end: 20141108

REACTIONS (1)
  - Death [Fatal]

NARRATIVE: CASE EVENT DATE: 20141108
